FAERS Safety Report 6338128-1 (Version None)
Quarter: 2009Q3

REPORT INFORMATION
  Report Type: 
  Country: None (occurrence: None)
  Receive Date: 20090902
  Receipt Date: 20090825
  Transmission Date: 20100115
  Serious: Yes (Other)
  Sender: FDA-Public Use
  Company Number: DE-PFIZER INC-2009238633

PATIENT
  Age: 48 Year

DRUGS (1)
  1. SORTIS [Suspect]
     Indication: DYSLIPIDAEMIA
     Dosage: 10 MG, 1X/DAY

REACTIONS (2)
  - BLOOD TEST ABNORMAL [None]
  - GAMMOPATHY [None]
